FAERS Safety Report 7326186-7 (Version None)
Quarter: 2011Q1

REPORT INFORMATION
  Report Type: 
  Country: None (occurrence: None)
  Receive Date: 20110302
  Receipt Date: 20110222
  Transmission Date: 20110831
  Serious: Yes (Other)
  Sender: FDA-Public Use
  Company Number: DE-ASTRAZENECA-2011SE09722

PATIENT
  Sex: Female

DRUGS (7)
  1. METFORMIN [Concomitant]
  2. AMLODIPLIN [Concomitant]
  3. MOXONIDIN [Concomitant]
  4. METHOHEXAL [Concomitant]
  5. DELIX PROTECT 10 [Concomitant]
  6. BRILIQUE [Suspect]
     Route: 048
  7. PLETAL [Concomitant]

REACTIONS (1)
  - ANGINA PECTORIS [None]
